FAERS Safety Report 7207123-2 (Version None)
Quarter: 2011Q1

REPORT INFORMATION
  Report Type: 
  Country: None (occurrence: None)
  Receive Date: 20110103
  Receipt Date: 20101222
  Transmission Date: 20110831
  Serious: Yes (Hospitalization, Other)
  Sender: FDA-Public Use
  Company Number: JP-ROCHE-634589

PATIENT
  Sex: Male
  Weight: 90 kg

DRUGS (8)
  1. FLUOROURACIL [Suspect]
     Dosage: DOSE FORM: INTRAVENOUS DRIP
     Route: 040
     Dates: start: 20080819, end: 20090417
  2. LEUCOVORIN CALCIUM [Suspect]
     Indication: RECTAL CANCER METASTATIC
     Route: 041
     Dates: start: 20080819, end: 20090417
  3. FLUOROURACIL [Suspect]
     Indication: RECTAL CANCER METASTATIC
     Dosage: DOSE FORM: INTRAVENOUS BOLUS
     Route: 040
     Dates: start: 20080819, end: 20090417
  4. AVASTIN [Suspect]
     Indication: RECTAL CANCER METASTATIC
     Dosage: STOP DATE: 2009
     Route: 041
     Dates: start: 20081107, end: 20090417
  5. OXALIPLATIN [Suspect]
     Indication: RECTAL CANCER METASTATIC
     Route: 041
     Dates: start: 20080819, end: 20090417
  6. DECADRON [Concomitant]
     Route: 042
     Dates: start: 20080819, end: 20090417
  7. NORVASC [Concomitant]
     Route: 048
  8. ONDANSETRON [Concomitant]
     Route: 042
     Dates: start: 20080819, end: 20090417

REACTIONS (6)
  - IDIOPATHIC THROMBOCYTOPENIC PURPURA [None]
  - GASTRITIS [None]
  - ASCITES [None]
  - DUODENAL ULCER HAEMORRHAGE [None]
  - GLUCOSE TOLERANCE IMPAIRED [None]
  - HELICOBACTER INFECTION [None]
